FAERS Safety Report 13491245 (Version 1)
Quarter: 2017Q2

REPORT INFORMATION
  Report Type: Spontaneous
  Country: PT (occurrence: PT)
  Receive Date: 20170427
  Receipt Date: 20170427
  Transmission Date: 20170830
  Serious: Yes (Death, Other)
  Sender: FDA-Public Use
  Company Number: PT-ROCHE-1923995

PATIENT

DRUGS (27)
  1. CISPLATIN. [Concomitant]
     Active Substance: CISPLATIN
  2. MABTHERA [Suspect]
     Active Substance: RITUXIMAB
     Indication: MARGINAL ZONE LYMPHOMA
  3. MABTHERA [Suspect]
     Active Substance: RITUXIMAB
     Indication: LYMPHOCYTIC LYMPHOMA
  4. BLEOMYCIN [Concomitant]
     Active Substance: BLEOMYCIN SULFATE
  5. MABTHERA [Suspect]
     Active Substance: RITUXIMAB
     Indication: DIFFUSE LARGE B-CELL LYMPHOMA
     Route: 042
  6. MABTHERA [Suspect]
     Active Substance: RITUXIMAB
     Indication: LYMPHOMA TRANSFORMATION
  7. MABTHERA [Suspect]
     Active Substance: RITUXIMAB
     Indication: DIFFUSE LARGE B-CELL LYMPHOMA
     Route: 042
  8. MABTHERA [Suspect]
     Active Substance: RITUXIMAB
     Indication: B-CELL LYMPHOMA
  9. MABTHERA [Suspect]
     Active Substance: RITUXIMAB
     Indication: LYMPHOMA TRANSFORMATION
  10. CYCLOPHOSPHAMIDE. [Concomitant]
     Active Substance: CYCLOPHOSPHAMIDE
  11. MABTHERA [Suspect]
     Active Substance: RITUXIMAB
     Indication: MANTLE CELL LYMPHOMA
  12. MABTHERA [Suspect]
     Active Substance: RITUXIMAB
     Indication: B-CELL SMALL LYMPHOCYTIC LYMPHOMA
  13. ETOPOSIDE. [Concomitant]
     Active Substance: ETOPOSIDE
  14. VINCRISTINE [Concomitant]
     Active Substance: VINCRISTINE
  15. BORTEZOMIB [Concomitant]
     Active Substance: BORTEZOMIB
  16. CYTARABINE. [Concomitant]
     Active Substance: CYTARABINE
  17. MABTHERA [Suspect]
     Active Substance: RITUXIMAB
     Indication: MARGINAL ZONE LYMPHOMA
  18. MABTHERA [Suspect]
     Active Substance: RITUXIMAB
     Indication: LYMPHOCYTIC LYMPHOMA
  19. DOXORUBICIN [Concomitant]
     Active Substance: DOXORUBICIN
  20. PREDNISONE. [Concomitant]
     Active Substance: PREDNISONE
  21. VINDESINE [Concomitant]
     Active Substance: VINDESINE
  22. MABTHERA [Suspect]
     Active Substance: RITUXIMAB
     Indication: MANTLE CELL LYMPHOMA
  23. DEXAMETHASONE. [Concomitant]
     Active Substance: DEXAMETHASONE
  24. MABTHERA [Suspect]
     Active Substance: RITUXIMAB
     Indication: B-CELL LYMPHOMA
  25. MABTHERA [Suspect]
     Active Substance: RITUXIMAB
     Indication: MARGINAL ZONE LYMPHOMA
  26. CHLORAMBUCIL [Concomitant]
     Active Substance: CHLORAMBUCIL
  27. FLUDARABINE [Concomitant]
     Active Substance: FLUDARABINE PHOSPHATE

REACTIONS (6)
  - Off label use [Unknown]
  - Death [Fatal]
  - Neutropenia [Unknown]
  - Administration related reaction [Unknown]
  - Febrile neutropenia [Unknown]
  - Infection [Unknown]
